FAERS Safety Report 20579572 (Version 2)
Quarter: 2022Q2

REPORT INFORMATION
  Report Type: Report from Study
  Country: IL (occurrence: IL)
  Receive Date: 20220310
  Receipt Date: 20220413
  Transmission Date: 20220721
  Serious: Yes (Hospitalization)
  Sender: FDA-Public Use
  Company Number: IL-JNJFOC-20201215217

PATIENT
  Age: 67 Year
  Sex: Male
  Weight: 67.9 kg

DRUGS (39)
  1. CILTACABTAGENE AUTOLEUCEL [Suspect]
     Active Substance: CILTACABTAGENE AUTOLEUCEL
     Indication: Plasma cell myeloma
     Dosage: 36.25 X 10E6 CAR POSITIVE T CELLS
     Route: 042
     Dates: start: 20201123, end: 20201123
  2. DARATUMUMAB [Suspect]
     Active Substance: DARATUMUMAB
     Indication: Plasma cell myeloma
     Dosage: DOSE ALSO REPORTED AS 15 ML.
     Route: 058
     Dates: start: 20200923, end: 20201014
  3. CYCLOPHOSPHAMIDE [Suspect]
     Active Substance: CYCLOPHOSPHAMIDE
     Indication: Plasma cell myeloma
     Dosage: 1000.26 ML
     Route: 042
     Dates: start: 20201118, end: 20201120
  4. FLUDARABINE [Suspect]
     Active Substance: FLUDARABINE PHOSPHATE
     Indication: Plasma cell myeloma
     Dosage: DOSE ALSO REPORTED AS 101.68 ML
     Route: 042
     Dates: start: 20201118, end: 20201120
  5. ASPIRIN [Concomitant]
     Active Substance: ASPIRIN
     Indication: Anticoagulant therapy
     Route: 048
     Dates: start: 20200923
  6. SODIUM CHLORIDE [Concomitant]
     Active Substance: SODIUM CHLORIDE
     Indication: Prophylaxis against dehydration
     Route: 042
     Dates: start: 20201117, end: 20201207
  7. AMIODARONE [Concomitant]
     Active Substance: AMIODARONE
     Indication: Arrhythmia prophylaxis
     Route: 048
     Dates: start: 20201117, end: 20201208
  8. LAMIVUDINE [Concomitant]
     Active Substance: LAMIVUDINE
     Indication: Hepatitis B reactivation
     Route: 048
     Dates: start: 20201118
  9. MESNA [Concomitant]
     Active Substance: MESNA
     Indication: Urinary bladder toxicity
     Route: 042
     Dates: start: 20201118, end: 20201120
  10. POTASSIUM CHLORIDE [Concomitant]
     Active Substance: POTASSIUM CHLORIDE
     Indication: Mineral supplementation
     Route: 042
     Dates: start: 20201118, end: 20201207
  11. ALLOPURINOL [Concomitant]
     Active Substance: ALLOPURINOL
     Indication: Prophylaxis
     Route: 042
     Dates: start: 20201119, end: 20201122
  12. FUROSEMIDE [Concomitant]
     Active Substance: FUROSEMIDE
     Indication: Fluid retention
     Route: 042
     Dates: start: 20201120, end: 20201128
  13. URSOLIT [Concomitant]
     Indication: Hepatobiliary disorder prophylaxis
     Route: 048
     Dates: start: 20201120, end: 20201208
  14. ZOVIRAX [Concomitant]
     Active Substance: ACYCLOVIR
     Indication: Prophylaxis
     Route: 048
     Dates: start: 20201121
  15. MAGNESIUM SULFATE [Concomitant]
     Active Substance: MAGNESIUM SULFATE
     Indication: Hypomagnesaemia
     Route: 042
     Dates: start: 20201121, end: 20201207
  16. MONTELUKAST [Concomitant]
     Active Substance: MONTELUKAST SODIUM
     Indication: Hypersensitivity
     Route: 048
     Dates: start: 20201123, end: 20201123
  17. PIPERACILLIN SODIUM\TAZOBACTAM SODIUM [Concomitant]
     Active Substance: PIPERACILLIN SODIUM\TAZOBACTAM SODIUM
     Indication: Pyrexia
     Dosage: 4/0.5
     Route: 042
     Dates: start: 20201124, end: 20201128
  18. PIPERACILLIN SODIUM\TAZOBACTAM SODIUM [Concomitant]
     Active Substance: PIPERACILLIN SODIUM\TAZOBACTAM SODIUM
     Indication: Cytokine release syndrome
     Dosage: 2/0.25
     Route: 042
     Dates: start: 20201128, end: 20201207
  19. PIPERACILLIN SODIUM\TAZOBACTAM SODIUM [Concomitant]
     Active Substance: PIPERACILLIN SODIUM\TAZOBACTAM SODIUM
     Indication: Infection prophylaxis
     Dosage: 4/0.5
     Route: 042
     Dates: start: 20201202, end: 20201202
  20. PIPERACILLIN SODIUM\TAZOBACTAM SODIUM [Concomitant]
     Active Substance: PIPERACILLIN SODIUM\TAZOBACTAM SODIUM
     Indication: Antibiotic therapy
     Dosage: 2/0.25
     Route: 042
     Dates: start: 20201202, end: 20201208
  21. AMLOW [AMLODIPINE BESILATE] [Concomitant]
     Indication: Essential hypertension
     Route: 048
     Dates: start: 20201127, end: 20201127
  22. AMLOW [AMLODIPINE BESILATE] [Concomitant]
     Route: 048
     Dates: start: 20201130, end: 20201130
  23. AMLOW [AMLODIPINE BESILATE] [Concomitant]
     Route: 048
     Dates: start: 20201204, end: 20201204
  24. TRICAN [FLUCONAZOLE] [Concomitant]
     Indication: Infection prophylaxis
     Route: 048
     Dates: start: 20201127, end: 20201128
  25. BETACORTEN G [Concomitant]
     Indication: Scratch
     Dosage: 2
     Route: 061
     Dates: start: 20201127, end: 20201129
  26. VANCOMYCIN [Concomitant]
     Active Substance: VANCOMYCIN
     Indication: Clostridial infection
     Route: 048
     Dates: start: 20201129, end: 20201208
  27. VANCOMYCIN [Concomitant]
     Active Substance: VANCOMYCIN
     Indication: Diarrhoea
     Route: 042
     Dates: start: 20201203, end: 20201204
  28. VANCOMYCIN [Concomitant]
     Active Substance: VANCOMYCIN
     Indication: Bacteraemia
  29. DIPYRONE [Concomitant]
     Active Substance: DIPYRONE
     Indication: Pyrexia
     Route: 048
     Dates: start: 20201202, end: 20201202
  30. VORICONAZOLE [Concomitant]
     Active Substance: VORICONAZOLE
     Indication: Infection prophylaxis
     Route: 042
     Dates: start: 20201203, end: 20201204
  31. VORICONAZOLE [Concomitant]
     Active Substance: VORICONAZOLE
     Route: 042
     Dates: start: 20201204, end: 20201206
  32. METFORMIN HYDROCHLORIDE\VILDAGLIPTIN [Concomitant]
     Active Substance: METFORMIN HYDROCHLORIDE\VILDAGLIPTIN
     Indication: Type 2 diabetes mellitus
     Dosage: 50/850
     Route: 048
     Dates: end: 20201124
  33. DIPYRONE [Concomitant]
     Active Substance: DIPYRONE
     Indication: Arthralgia
     Route: 048
  34. BROTIZOLAM [Concomitant]
     Active Substance: BROTIZOLAM
     Indication: Insomnia
     Route: 048
  35. ACETAMINOPHEN [Concomitant]
     Active Substance: ACETAMINOPHEN
     Indication: Pain prophylaxis
     Route: 048
  36. AVILAC [GALACTOSE;LACTOSE ANHYDROUS;LACTULOSE] [Concomitant]
     Indication: Constipation
     Route: 048
  37. ZALDIAR [Concomitant]
     Active Substance: ACETAMINOPHEN\TRAMADOL HYDROCHLORIDE
     Indication: Arthralgia
     Dosage: 37.5/325
     Route: 048
  38. VITAMINS [Concomitant]
     Active Substance: VITAMINS
     Indication: Vitamin supplementation
     Route: 048
  39. ERYTHROPOIETIN [Concomitant]
     Active Substance: ERYTHROPOIETIN
     Indication: Anaemia
     Route: 058
     Dates: start: 20211108

REACTIONS (1)
  - Neutrophil count decreased [Recovering/Resolving]

NARRATIVE: CASE EVENT DATE: 20201204
